FAERS Safety Report 5863252-7 (Version None)
Quarter: 2008Q3

REPORT INFORMATION
  Report Type: 
  Country: None (occurrence: None)
  Receive Date: 20080828
  Receipt Date: 20080816
  Transmission Date: 20090109
  Serious: No
  Sender: FDA-Public Use
  Company Number: BR-ROCHE-582033

PATIENT
  Sex: Female
  Weight: 60 kg

DRUGS (3)
  1. ROACUTAN [Suspect]
     Indication: ACNE
     Route: 048
     Dates: start: 20070701, end: 20070901
  2. ROACUTAN [Suspect]
     Route: 048
     Dates: start: 20080101, end: 20080505
  3. DESOGESTREL AND ETHINYL ESTRADIOL [Suspect]
     Indication: CONTRACEPTION
     Route: 065
     Dates: end: 20080701

REACTIONS (2)
  - NO ADVERSE EVENT [None]
  - PREGNANCY [None]
